FAERS Safety Report 5388210-0 (Version None)
Quarter: 2007Q3

REPORT INFORMATION
  Report Type: 
  Country: None (occurrence: None)
  Receive Date: 20070716
  Receipt Date: 20070117
  Transmission Date: 20080115
  Serious: No
  Sender: FDA-Public Use
  Company Number: A0635828A

PATIENT
  Age: 32 Year
  Sex: Female

DRUGS (1)
  1. NICORETTE (MINT) [Suspect]
     Dates: start: 20070112

REACTIONS (3)
  - DRUG INEFFECTIVE [None]
  - NICOTINE DEPENDENCE [None]
  - PHARMACEUTICAL PRODUCT COMPLAINT [None]
